FAERS Safety Report 25265725 (Version 2)
Quarter: 2025Q2

REPORT INFORMATION
  Report Type: Spontaneous
  Country: DE (occurrence: DE)
  Receive Date: 20250503
  Receipt Date: 20250531
  Transmission Date: 20250717
  Serious: Yes (Congenital Anomaly, Other)
  Sender: AUROBINDO
  Company Number: DE-EMB-M202109567-1

PATIENT
  Sex: Male
  Weight: 3.145 kg

DRUGS (9)
  1. METFORMIN [Suspect]
     Active Substance: METFORMIN HYDROCHLORIDE
     Indication: Polycystic ovarian syndrome
     Route: 064
     Dates: start: 202011, end: 202105
  2. CITALOPRAM [Suspect]
     Active Substance: CITALOPRAM
     Indication: Depression
     Route: 064
  3. METOPROLOL TARTRATE [Suspect]
     Active Substance: METOPROLOL TARTRATE
     Indication: Hypertension
     Route: 064
     Dates: start: 202011, end: 202108
  4. METHYLDOPA [Suspect]
     Active Substance: METHYLDOPA
     Indication: Hypertension
     Route: 064
     Dates: start: 202011, end: 202108
  5. OMEPRAZOLE [Concomitant]
     Active Substance: OMEPRAZOLE
     Indication: Gastritis prophylaxis
     Route: 064
  6. EFEROX [Concomitant]
     Active Substance: LEVOTHYROXINE SODIUM
     Indication: Hypothyroidism
     Dosage: 75 MICROGRAM, ONCE A DAY
     Route: 064
     Dates: start: 202011, end: 202108
  7. ASPIRIN [Concomitant]
     Active Substance: ASPIRIN
     Indication: Prophylaxis
     Dosage: 150 MILLIGRAM, ONCE A DAY
     Route: 064
  8. FOSFOMYCIN TROMETHAMINE [Concomitant]
     Active Substance: FOSFOMYCIN TROMETHAMINE
     Indication: Urinary tract infection
     Dosage: 3000 MILLIGRAM, ONCE A DAY
     Route: 064
     Dates: start: 202101, end: 202101
  9. BOOSTRIX [Concomitant]
     Active Substance: TETANUS TOXOID, REDUCED DIPHTHERIA TOXOID AND ACELLULAR PERTUSSIS VACCINE, ADSORBED ANTIGENS
     Indication: Immunisation
     Route: 064
     Dates: start: 202105, end: 202105

REACTIONS (3)
  - Foetal heart rate deceleration abnormality [Unknown]
  - Hypospadias [Unknown]
  - Foetal exposure during pregnancy [Unknown]
